FAERS Safety Report 25066897 (Version 1)
Quarter: 2025Q1

REPORT INFORMATION
  Report Type: Spontaneous
  Country: FR (occurrence: FR)
  Receive Date: 20250312
  Receipt Date: 20250312
  Transmission Date: 20250409
  Serious: Yes (Other)
  Sender: ROCHE
  Company Number: None

PATIENT
  Age: 86 Year
  Sex: Male

DRUGS (6)
  1. CEFTRIAXONE SODIUM [Suspect]
     Active Substance: CEFTRIAXONE SODIUM
     Indication: Endocarditis
     Route: 042
     Dates: start: 20250131, end: 20250212
  2. OSELTAMIVIR [Suspect]
     Active Substance: OSELTAMIVIR
     Indication: Influenza
     Route: 048
     Dates: start: 20250206, end: 20250210
  3. AMOXICILLIN [Suspect]
     Active Substance: AMOXICILLIN
     Indication: Endocarditis
     Route: 042
     Dates: start: 20250124, end: 20250130
  4. AMOXICILLIN [Suspect]
     Active Substance: AMOXICILLIN
     Route: 042
     Dates: start: 20250131, end: 20250212
  5. FIDAXOMICIN [Suspect]
     Active Substance: FIDAXOMICIN
     Indication: Clostridium difficile colitis
     Route: 048
     Dates: start: 20250204, end: 20250214
  6. PREGABALIN [Concomitant]
     Active Substance: PREGABALIN
     Route: 048
     Dates: start: 20250206

REACTIONS (1)
  - Hepatic cytolysis [Recovering/Resolving]

NARRATIVE: CASE EVENT DATE: 20250212
